FAERS Safety Report 24131285 (Version 2)
Quarter: 2024Q3

REPORT INFORMATION
  Report Type: Spontaneous
  Country: CN (occurrence: CN)
  Receive Date: 20240724
  Receipt Date: 20240731
  Transmission Date: 20241017
  Serious: Yes (Other)
  Sender: ACCORD
  Company Number: CN-Accord-436736

PATIENT
  Age: 65 Year
  Sex: Male

DRUGS (6)
  1. OXALIPLATIN [Suspect]
     Active Substance: OXALIPLATIN
     Indication: Colorectal cancer
     Dosage: 200 MG ON DAY 1 (Q3W)
     Dates: start: 20210720, end: 202201
  2. CAPECITABINE [Concomitant]
     Active Substance: CAPECITABINE
     Indication: Colorectal cancer
     Dosage: 1,500 MG, PO BID D1-14 (Q3W)
     Route: 048
     Dates: start: 20210720, end: 202201
  3. CAPECITABINE [Concomitant]
     Active Substance: CAPECITABINE
     Indication: Metastases to lymph nodes
     Dosage: 1,500 MG, PO BID D1-14 (Q3W)
     Route: 048
     Dates: start: 20210720, end: 202201
  4. CAPECITABINE [Concomitant]
     Active Substance: CAPECITABINE
     Indication: Intestinal metastasis
     Dosage: 1,500 MG, PO BID D1-14 (Q3W)
     Route: 048
     Dates: start: 20210720, end: 202201
  5. OXALIPLATIN [Suspect]
     Active Substance: OXALIPLATIN
     Indication: Metastases to lymph nodes
     Dosage: 200 MG ON DAY 1 (Q3W)
     Dates: start: 20210720, end: 202201
  6. OXALIPLATIN [Suspect]
     Active Substance: OXALIPLATIN
     Indication: Intestinal metastasis
     Dosage: 200 MG ON DAY 1 (Q3W)
     Dates: start: 20210720, end: 202201

REACTIONS (1)
  - Ascites [Recovered/Resolved]

NARRATIVE: CASE EVENT DATE: 20210101
